FAERS Safety Report 18953220 (Version 1)
Quarter: 2021Q1

REPORT INFORMATION
  Report Type: Spontaneous
  Country: US (occurrence: US)
  Receive Date: 20210227
  Receipt Date: 20210227
  Transmission Date: 20210420
  Serious: No
  Sender: FDA-Public Use
  Company Number: None

PATIENT
  Sex: Male

DRUGS (1)
  1. TALTZ [Suspect]
     Active Substance: IXEKIZUMAB
     Indication: PSORIASIS
     Dosage: OTHER DOSE:2 PENS, 1 PEN;OTHER FREQUENCY:WEEK 0?12, MONTHLY;?
     Route: 058
     Dates: start: 20210126

REACTIONS (1)
  - Drug ineffective [None]
